FAERS Safety Report 8002727-1 (Version None)
Quarter: 2011Q4

REPORT INFORMATION
  Report Type: 
  Country: None (occurrence: None)
  Receive Date: 20111222
  Receipt Date: 20111212
  Transmission Date: 20120403
  Serious: Yes (Other)
  Sender: FDA-Public Use
  Company Number: CN-ELI_LILLY_AND_COMPANY-CN201112004213

PATIENT

DRUGS (4)
  1. FLUOROURACIL [Concomitant]
     Dosage: 3000 MG/M2, 48 HOUR INFUSION
  2. LEUCOVORIN CALCIUM [Concomitant]
     Dosage: 150 MG/M2, 48HOUR INFUSION
  3. OXALIPLATIN [Concomitant]
     Dosage: 85 MG/M2, UNKNOWN
  4. GEMCITABINE HYDROCHLORIDE [Suspect]
     Indication: PANCREATIC CARCINOMA
     Dosage: 800 MG/M2, UNKNOWN
     Route: 042

REACTIONS (1)
  - LIVER ABSCESS [None]
